FAERS Safety Report 5695105-1 (Version None)
Quarter: 2008Q2

REPORT INFORMATION
  Report Type: 
  Country: None (occurrence: None)
  Receive Date: 20080404
  Receipt Date: 20080328
  Transmission Date: 20081010
  Serious: Yes (Hospitalization)
  Sender: FDA-Public Use
  Company Number: PHHY2008IT04073

PATIENT
  Age: 83 Year
  Sex: Male

DRUGS (6)
  1. EOLUS [Suspect]
     Indication: RESPIRATORY TRACT CONGESTION
     Dosage: UNK, UNK
     Dates: start: 20080220, end: 20080225
  2. LEVOTHYROXINE SODIUM [Concomitant]
  3. PROPAFENONE HYDROCHLORIDE [Concomitant]
  4. NORVASC [Concomitant]
  5. ASPIRIN [Concomitant]
  6. CANDESARTAN CILEXETIL [Concomitant]

REACTIONS (2)
  - ACUTE PULMONARY OEDEMA [None]
  - TACHYCARDIA [None]
